FAERS Safety Report 5238443-9 (Version None)
Quarter: 2007Q1

REPORT INFORMATION
  Report Type: 
  Country: None (occurrence: None)
  Receive Date: 20070215
  Receipt Date: 20070205
  Transmission Date: 20070707
  Serious: Yes (Other)
  Sender: FDA-Public Use
  Company Number: HQWYE804106FEB07

PATIENT
  Sex: Female
  Weight: 97.61 kg

DRUGS (5)
  1. EFFEXOR XR [Suspect]
     Indication: DEPRESSION
     Route: 048
     Dates: start: 20051201, end: 20060101
  2. EFFEXOR XR [Suspect]
     Route: 048
     Dates: start: 20060101
  3. LIPITOR [Concomitant]
     Dosage: UNKNOWN
     Route: 048
  4. LISINOPRIL [Concomitant]
     Dosage: UNKNOWN
     Route: 048
  5. PROTONIX [Concomitant]
     Indication: GASTROOESOPHAGEAL REFLUX DISEASE
     Route: 048

REACTIONS (3)
  - DRUG DEPENDENCE [None]
  - DRUG WITHDRAWAL SYNDROME [None]
  - NAUSEA [None]
